FAERS Safety Report 15010990 (Version 1)
Quarter: 2018Q2

REPORT INFORMATION
  Report Type: Spontaneous
  Country: US (occurrence: US)
  Receive Date: 20180614
  Receipt Date: 20180614
  Transmission Date: 20180711
  Serious: Yes (Other)
  Sender: FDA-Public Use
  Company Number: PHHY2018US017851

PATIENT
  Age: 59 Year
  Sex: Male

DRUGS (3)
  1. TACROLIMUS. [Interacting]
     Active Substance: TACROLIMUS
     Indication: IMMUNOSUPPRESSANT DRUG THERAPY
  2. TACROLIMUS. [Suspect]
     Active Substance: TACROLIMUS
     Indication: RENAL TRANSPLANT
     Route: 065
  3. POSACONAZOLE [Interacting]
     Active Substance: POSACONAZOLE
     Indication: HISTOPLASMOSIS
     Route: 065

REACTIONS (8)
  - Decreased appetite [Recovering/Resolving]
  - Asthenia [Recovering/Resolving]
  - Myalgia [Recovering/Resolving]
  - Drug level above therapeutic [Unknown]
  - Drug interaction [Unknown]
  - Weight decreased [Recovering/Resolving]
  - Toxicity to various agents [Unknown]
  - Chills [Recovering/Resolving]
